FAERS Safety Report 9384603 (Version 3)
Quarter: 2013Q3

REPORT INFORMATION
  Report Type: Report from Study
  Country: US (occurrence: US)
  Receive Date: 20130705
  Receipt Date: 20130726
  Transmission Date: 20140515
  Serious: Yes (Hospitalization)
  Sender: FDA-Public Use
  Company Number: US-UCBSA-091024

PATIENT
  Age: 33 Year
  Sex: Male
  Weight: 100.43 kg

DRUGS (16)
  1. CIMZIA [Suspect]
     Indication: CROHN^S DISEASE
     Dosage: DOSE - 400MG
     Route: 058
     Dates: start: 20120227
  2. METHOTREXATE [Concomitant]
     Indication: CROHN^S DISEASE
     Dosage: UNSPECIFIED DOSE
     Dates: start: 2001, end: 20130624
  3. IBUPROFEN [Concomitant]
     Indication: CROHN^S DISEASE
     Dosage: UNSPECIFIED
  4. MIRALAX [Concomitant]
     Dosage: 17 GRAM PACKET, 1 PACKET BID
     Route: 048
  5. LEVAQUIN [Concomitant]
     Dosage: 500 MG, 1 TABLET DAILY
     Route: 048
  6. FLAGYL [Concomitant]
     Dosage: 500 MG
     Route: 048
  7. LIDOCAINE [Concomitant]
     Indication: PAIN
     Dosage: 4%
     Route: 061
  8. ANUSOL HC [Concomitant]
     Indication: PAIN
     Dosage: 2.5%
     Route: 054
  9. DULCOLAX [Concomitant]
     Indication: CONSTIPATION
     Dosage: 5 MG, 1 TABLET
     Route: 048
  10. MYLICON [Concomitant]
     Dosage: 80 MG TABLET
     Route: 048
  11. ZOSYN [Concomitant]
     Dosage: 3.375 G IN 0.9%
  12. NITROGLYCERIN [Concomitant]
     Dosage: 0.2%
     Route: 054
  13. AMBIEN [Concomitant]
     Dosage: 5 MG , NIGHTLY
  14. SODIUM CHLORIDE [Concomitant]
     Dosage: 0.9%, 3 ML
     Route: 042
  15. 6-MP [Concomitant]
  16. TYLENOL [Concomitant]
     Dosage: 650 MG ONCE EVERY 6 HOURS AS REQUIRED
     Route: 048

REACTIONS (1)
  - Haemorrhoidal haemorrhage [Recovered/Resolved]
